FAERS Safety Report 22114394 (Version 1)
Quarter: 2023Q1

REPORT INFORMATION
  Report Type: Spontaneous
  Country: GB (occurrence: GB)
  Receive Date: 20230320
  Receipt Date: 20230320
  Transmission Date: 20230418
  Serious: Yes (Disabling, Other)
  Sender: FDA-Public Use
  Company Number: None

PATIENT
  Age: 60 Year
  Sex: Male
  Weight: 87.50 kg

DRUGS (5)
  1. AMITRIPTYLINE [Suspect]
     Active Substance: AMITRIPTYLINE
     Indication: Demyelination
     Dosage: 1 EVERY NIGHT
     Route: 048
  2. POLYETHYLENE GLYCOL 3350\POTASSIUM CHLORIDE\SODIUM BICARBONATE\SODIUM [Concomitant]
     Active Substance: POLYETHYLENE GLYCOL 3350\POTASSIUM CHLORIDE\SODIUM BICARBONATE\SODIUM CHLORIDE
     Dosage: ONE SACHET ONCE OR TWICE DAILY WHEN REQUIRED.
     Dates: start: 20220526
  3. OMEPRAZOLE [Concomitant]
     Active Substance: OMEPRAZOLE
     Dosage: 1 CAPSULE ONCE A DAY, STRENGTH: 20MG
     Dates: start: 20220506
  4. TRAMADOL [Concomitant]
     Active Substance: TRAMADOL
     Dosage: 1-2 FOUR TIMES A DAY WHEN REQUIRED
     Dates: start: 20220404
  5. TRAMADOL [Concomitant]
     Active Substance: TRAMADOL
     Dosage: 1-2 FOUR TIMES A DAY WHEN REQUIRED, STRENGTH: 50MG
     Dates: start: 20220404

REACTIONS (2)
  - Neurological symptom [Not Recovered/Not Resolved]
  - Off label use [Unknown]

NARRATIVE: CASE EVENT DATE: 20220429
